FAERS Safety Report 5644496-6 (Version None)
Quarter: 2008Q1

REPORT INFORMATION
  Report Type: 
  Country: None (occurrence: None)
  Receive Date: 20080229
  Receipt Date: 20070123
  Transmission Date: 20080703
  Serious: No
  Sender: FDA-Public Use
  Company Number: A0636697A

PATIENT
  Age: 55 Year
  Sex: Female

DRUGS (6)
  1. VALTREX [Suspect]
     Indication: GENITAL HERPES
     Dosage: 500MG TWICE PER DAY
     Route: 048
     Dates: start: 20070101
  2. FEMHRT [Concomitant]
  3. HYDROCHLOROTHIAZIDE [Concomitant]
  4. MULTI-VITAMIN [Concomitant]
  5. CENTRUM SILVER [Concomitant]
  6. ASPIRIN [Concomitant]

REACTIONS (1)
  - NAUSEA [None]
